FAERS Safety Report 24592902 (Version 1)
Quarter: 2024Q4

REPORT INFORMATION
  Report Type: Spontaneous
  Country: US (occurrence: None)
  Receive Date: 20241107
  Receipt Date: 20241107
  Transmission Date: 20250114
  Serious: Yes (Disabling)
  Sender: Public
  Company Number: None

PATIENT
  Age: 71 Year
  Sex: Female
  Weight: 73.8 kg

DRUGS (4)
  1. METHYLPREDNISOLONE SODIUM SUCCINATE [Suspect]
     Active Substance: METHYLPREDNISOLONE SODIUM SUCCINATE
     Indication: Greater trochanteric pain syndrome
     Dosage: OTHER QUANTITY : 1 INJECTION(S);?OTHER FREQUENCY : 1 INJECTION;?
     Route: 030
  2. TYLENOL [Concomitant]
     Active Substance: ACETAMINOPHEN
  3. New Chapter Every Women^s Multivitamin 55 plus [Concomitant]
  4. New Chapter Vitamin D3 [Concomitant]

REACTIONS (1)
  - Joint dislocation [None]

NARRATIVE: CASE EVENT DATE: 20230818
